FAERS Safety Report 24251418 (Version 2)
Quarter: 2024Q3

REPORT INFORMATION
  Report Type: Spontaneous
  Country: US (occurrence: US)
  Receive Date: 20240826
  Receipt Date: 20240906
  Transmission Date: 20241016
  Serious: No
  Sender: BAUSCH AND LOMB
  Company Number: US-BAUSCHBL-2024BNL031849

PATIENT
  Age: 72 Year
  Sex: Female

DRUGS (1)
  1. XIIDRA [Suspect]
     Active Substance: LIFITEGRAST
     Indication: Dry eye
     Route: 047
     Dates: start: 20240709, end: 20240711

REACTIONS (9)
  - Epistaxis [Recovering/Resolving]
  - Pain [Recovering/Resolving]
  - Eye pruritus [Recovering/Resolving]
  - Eyelid skin dryness [Recovering/Resolving]
  - Dry eye [Recovering/Resolving]
  - Nasal pruritus [Recovering/Resolving]
  - Foreign body sensation in eyes [Recovering/Resolving]
  - Eyelid pain [Recovering/Resolving]
  - Lacrimation increased [Unknown]

NARRATIVE: CASE EVENT DATE: 20240701
